FAERS Safety Report 5884480-0 (Version None)
Quarter: 2008Q3

REPORT INFORMATION
  Report Type: 
  Country: None (occurrence: None)
  Receive Date: 20080911
  Receipt Date: 20080905
  Transmission Date: 20090109
  Serious: Yes (Other)
  Sender: FDA-Public Use
  Company Number: GXKR2008DE08476

PATIENT
  Age: 49 Year
  Sex: Female

DRUGS (2)
  1. NAPROXEN HEXAL (NGX) (NAPROXEN) FILM-COATED TABLET [Suspect]
     Dosage: ORAL
     Route: 048
  2. DULOXETINE (DULOXETINE) [Concomitant]

REACTIONS (1)
  - ELECTROCARDIOGRAM QT PROLONGED [None]
